FAERS Safety Report 16960191 (Version 1)
Quarter: 2019Q4

REPORT INFORMATION
  Report Type: Spontaneous
  Country: US (occurrence: US)
  Receive Date: 20191025
  Receipt Date: 20191025
  Transmission Date: 20200122
  Serious: No
  Sender: FDA-Public Use
  Company Number: US-ASTRAZENECA-2019SF38680

PATIENT
  Age: 25958 Day
  Sex: Female
  Weight: 99.8 kg

DRUGS (3)
  1. SYMBICORT [Suspect]
     Active Substance: BUDESONIDE\FORMOTEROL FUMARATE DIHYDRATE
     Indication: ASTHMA
     Dosage: 160/4.5MCG 2 PUFFS TWICE A DAY
     Route: 055
     Dates: start: 2016
  2. ALBUTEROL. [Concomitant]
     Active Substance: ALBUTEROL
     Dosage: AS REQUIRED
  3. PLAVIX [Concomitant]
     Active Substance: CLOPIDOGREL BISULFATE
     Indication: TRANSIENT ISCHAEMIC ATTACK
     Route: 048
     Dates: start: 2013

REACTIONS (4)
  - Dysphagia [Unknown]
  - Suffocation feeling [Unknown]
  - Dysphonia [Unknown]
  - Choking [Unknown]

NARRATIVE: CASE EVENT DATE: 20190925
